FAERS Safety Report 4324768-8 (Version None)
Quarter: 2004Q1

REPORT INFORMATION
  Report Type: 
  Country: None (occurrence: None)
  Receive Date: 20040326
  Receipt Date: 20031201
  Transmission Date: 20041129
  Serious: Yes (Other)
  Sender: FDA-Public Use
  Company Number: US-GLAXOSMITHKLINE-A0441497A

PATIENT
  Age: 25 Year
  Sex: Male

DRUGS (9)
  1. PAXIL CR [Suspect]
     Indication: SOCIAL PHOBIA
     Dosage: 50MG PER DAY
     Route: 048
     Dates: start: 20030107
  2. CONTAC [Suspect]
     Indication: DRUG USE FOR UNKNOWN INDICATION
     Route: 048
  3. WELLBUTRIN [Suspect]
     Indication: SMOKING CESSATION THERAPY
     Route: 048
  4. PAXIL [Suspect]
     Indication: ANXIETY
     Route: 048
  5. ALCOHOL [Suspect]
     Route: 048
     Dates: start: 20030626, end: 20030626
  6. XANAX [Concomitant]
  7. CLONOPIN [Concomitant]
  8. SEROQUEL [Concomitant]
  9. ATENOLOL [Concomitant]

REACTIONS (22)
  - ABNORMAL BEHAVIOUR [None]
  - ALCOHOL POISONING [None]
  - AMNESIA [None]
  - ANXIETY [None]
  - ATTENTION DEFICIT/HYPERACTIVITY DISORDER [None]
  - CONFUSIONAL STATE [None]
  - DEPRESSION [None]
  - DIARRHOEA [None]
  - DISTURBANCE IN ATTENTION [None]
  - DRUG INTERACTION [None]
  - DYSPHORIA [None]
  - FATIGUE [None]
  - HEADACHE [None]
  - INITIAL INSOMNIA [None]
  - LACERATION [None]
  - MENTAL STATUS CHANGES [None]
  - MYDRIASIS [None]
  - NAUSEA [None]
  - OBSESSIVE-COMPULSIVE DISORDER [None]
  - PANIC ATTACK [None]
  - PSYCHOTIC DISORDER [None]
  - TOXICOLOGIC TEST ABNORMAL [None]
